FAERS Safety Report 12313478 (Version 2)
Quarter: 2016Q2

REPORT INFORMATION
  Report Type: Spontaneous
  Country: US (occurrence: US)
  Receive Date: 20160428
  Receipt Date: 20160504
  Transmission Date: 20160815
  Serious: No
  Sender: FDA-Public Use
  Company Number: US-JNJFOC-20160420893

PATIENT
  Sex: Female

DRUGS (1)
  1. SANDOZ FENTANYL MATRIX TRANSDERMAL SYSTEM [Suspect]
     Active Substance: FENTANYL
     Indication: PAIN
     Dosage: 12.5 UG/HR + 25 UG/HR
     Route: 062
     Dates: start: 201406

REACTIONS (3)
  - Wrong technique in product usage process [Unknown]
  - Arthritis [Unknown]
  - Product quality issue [Unknown]

NARRATIVE: CASE EVENT DATE: 201506
